FAERS Safety Report 18760592 (Version 1)
Quarter: 2021Q1

REPORT INFORMATION
  Report Type: Spontaneous
  Country: DE (occurrence: DE)
  Receive Date: 20210119
  Receipt Date: 20210119
  Transmission Date: 20210419
  Serious: Yes (Other)
  Sender: FDA-Public Use
  Company Number: DE-TEVA-2021-DE-1868193

PATIENT
  Age: 40 Year
  Sex: Female

DRUGS (1)
  1. COPAXONE [Suspect]
     Active Substance: GLATIRAMER ACETATE
     Indication: MULTIPLE SCLEROSIS
     Dates: start: 20150601

REACTIONS (2)
  - Injection site necrosis [Unknown]
  - Skin discomfort [Not Recovered/Not Resolved]

NARRATIVE: CASE EVENT DATE: 2020
